FAERS Safety Report 25590980 (Version 2)
Quarter: 2025Q3

REPORT INFORMATION
  Report Type: Spontaneous
  Country: US (occurrence: US)
  Receive Date: 20250722
  Receipt Date: 20250903
  Transmission Date: 20251020
  Serious: Yes (Hospitalization, Other)
  Sender: PFIZER
  Company Number: US-PFIZER INC-202500146309

PATIENT
  Age: 56 Year
  Sex: Male
  Weight: 75.75 kg

DRUGS (10)
  1. ELREXFIO [Suspect]
     Active Substance: ELRANATAMAB-BCMM
     Indication: Amyloidosis
     Route: 058
     Dates: start: 20250429, end: 20250514
  2. AMIODARONE [Concomitant]
     Active Substance: AMIODARONE
     Indication: Heart rate abnormal
     Dosage: 200 MG, 1X/DAY
  3. APIXABAN [Concomitant]
     Active Substance: APIXABAN
     Indication: Atrial fibrillation
     Dosage: 5 MG, 2X/DAY
  4. ATORVASTATIN CALCIUM [Concomitant]
     Active Substance: ATORVASTATIN CALCIUM
     Indication: Blood cholesterol abnormal
     Dosage: 80 MG, 1X/DAY
  5. BUMETANIDE [Concomitant]
     Active Substance: BUMETANIDE
     Indication: Cardiac failure congestive
     Dosage: 4 MG, 1X/DAY
  6. EMPAGLIFLOZIN [Concomitant]
     Active Substance: EMPAGLIFLOZIN
     Indication: Cardiac failure congestive
     Dosage: 25 MG, 1X/DAY
  7. EMPAGLIFLOZIN [Concomitant]
     Active Substance: EMPAGLIFLOZIN
     Indication: Type 2 diabetes mellitus
  8. EPLERENONE [Concomitant]
     Active Substance: EPLERENONE
     Indication: Cardiac failure congestive
     Dosage: 50 MG, 2X/DAY
  9. METFORMIN [Concomitant]
     Active Substance: METFORMIN HYDROCHLORIDE
     Indication: Type 2 diabetes mellitus
     Dosage: 1000 MG, 2X/DAY
  10. CLAVULANATE POTASSIUM [Concomitant]
     Active Substance: CLAVULANATE POTASSIUM
     Indication: Blood potassium
     Dosage: 20 MG, 1X/DAY

REACTIONS (2)
  - Guillain-Barre syndrome [Recovering/Resolving]
  - Off label use [Recovering/Resolving]

NARRATIVE: CASE EVENT DATE: 20250429
